FAERS Safety Report 23043475 (Version 2)
Quarter: 2023Q4

REPORT INFORMATION
  Report Type: Report from Study
  Country: GB (occurrence: GB)
  Receive Date: 20231009
  Receipt Date: 20231030
  Transmission Date: 20240110
  Serious: Yes (Other)
  Sender: FDA-Public Use
  Company Number: GB-IPSEN Group, Research and Development-2022-17336

PATIENT
  Age: 71 Year
  Sex: Male

DRUGS (2)
  1. LANREOTIDE ACETATE [Suspect]
     Active Substance: LANREOTIDE ACETATE
     Indication: Neuroendocrine tumour
     Dosage: 120 MG/0.5 ML
     Route: 058
  2. LANREOTIDE ACETATE [Suspect]
     Active Substance: LANREOTIDE ACETATE
     Dosage: 120 MG/0.5 ML
     Route: 058

REACTIONS (13)
  - Malignant neoplasm progression [Not Recovered/Not Resolved]
  - Pancreatitis [Unknown]
  - Renal impairment [Unknown]
  - Abdominal pain [Unknown]
  - Nausea [Unknown]
  - Vomiting [Unknown]
  - Hypophagia [Unknown]
  - Blood urea decreased [Unknown]
  - Blood electrolytes decreased [Unknown]
  - Nausea [Unknown]
  - Decreased appetite [Unknown]
  - Pruritus [Unknown]
  - Off label use [Unknown]

NARRATIVE: CASE EVENT DATE: 20220101
